FAERS Safety Report 8772055 (Version 2)
Quarter: 2012Q4

REPORT INFORMATION
  Report Type: Report from Study
  Country: ES (occurrence: ES)
  Receive Date: 20120906
  Receipt Date: 20121010
  Transmission Date: 20130627
  Serious: Yes (Hospitalization)
  Sender: FDA-Public Use
  Company Number: ES-BAXTER-2012BAX015834

PATIENT
  Age: 67 Year
  Sex: Male
  Weight: 57 kg

DRUGS (22)
  1. GENOXAL [Suspect]
     Indication: DIFFUSE LARGE B-CELL LYMPHOMA
     Route: 042
     Dates: start: 20120607
  2. DOXORUBICIN [Suspect]
     Indication: DIFFUSE LARGE B-CELL LYMPHOMA
     Route: 042
     Dates: start: 20120607
  3. VINCRISTINE [Suspect]
     Indication: DIFFUSE LARGE B-CELL LYMPHOMA
     Route: 040
     Dates: start: 20120607
  4. PREDNISONE [Suspect]
     Indication: DIFFUSE LARGE B-CELL LYMPHOMA
     Route: 048
     Dates: start: 20120607
  5. PREDNISONE [Suspect]
     Route: 048
     Dates: start: 20120719
  6. DEXAMETHASONE [Concomitant]
     Indication: DYSPHAGIA
     Route: 065
     Dates: start: 20120613
  7. OMEPRAZOLE [Concomitant]
     Indication: GASTRIC ULCER PROPHYLAXIS
     Route: 065
     Dates: start: 20120629, end: 20120707
  8. OMEPRAZOLE [Concomitant]
     Route: 065
     Dates: start: 20120808, end: 20120812
  9. FLUCONAZOLE [Concomitant]
     Indication: LOWER RESPIRATORY TRACT INFECTION
     Route: 065
     Dates: start: 20120619, end: 20120725
  10. FLUCONAZOLE [Concomitant]
     Route: 065
     Dates: start: 20120807, end: 20120812
  11. AUGMENTINE                         /00756801/ [Concomitant]
     Indication: ASPIRATION PNEUMONIA
     Route: 065
     Dates: start: 20120701, end: 20120705
  12. AUGMENTINE                         /00756801/ [Concomitant]
     Route: 065
     Dates: start: 20120809, end: 20120813
  13. MEROPENEM [Concomitant]
     Indication: ASPIRATION PNEUMONIA
     Route: 065
     Dates: start: 20120705, end: 20120715
  14. MEROPENEM [Concomitant]
     Indication: LOWER RESPIRATORY TRACT INFECTION
     Route: 065
     Dates: start: 20120805
  15. LEVOFLOXACIN [Concomitant]
     Indication: ASPIRATION PNEUMONIA
     Route: 065
     Dates: start: 20120716, end: 20120726
  16. NEUPOGEN [Concomitant]
     Indication: FEBRILE NEUTROPENIA
     Route: 065
     Dates: start: 20120706, end: 20120708
  17. PHYTOMENADIONE [Concomitant]
     Indication: COUGHING BLOOD
     Route: 065
     Dates: start: 20120705, end: 20120712
  18. FUROSEMIDE [Concomitant]
     Indication: DRUG USE FOR UNKNOWN INDICATION
     Route: 065
     Dates: start: 20120722, end: 20120722
  19. DEXCHLORPHENIRAMINE [Concomitant]
     Indication: DRUG USE FOR UNKNOWN INDICATION
     Route: 065
     Dates: start: 20120607
  20. PARACETAMOL [Concomitant]
     Indication: DRUG USE FOR UNKNOWN INDICATION
     Route: 065
     Dates: start: 20120607
  21. PARACETAMOL [Concomitant]
     Indication: LOWER RESPIRATORY TRACT INFECTION
     Route: 065
     Dates: start: 20120731, end: 20120805
  22. PARACETAMOL [Concomitant]
     Route: 065
     Dates: start: 20120806, end: 20120806

REACTIONS (1)
  - Lower respiratory tract infection [Recovered/Resolved]
